FAERS Safety Report 23853962 (Version 2)
Quarter: 2024Q3

REPORT INFORMATION
  Report Type: Spontaneous
  Country: JP (occurrence: JP)
  Receive Date: 20240514
  Receipt Date: 20240718
  Transmission Date: 20241017
  Serious: Yes (Other)
  Sender: BAXTER
  Company Number: JP-shionogi-202403487_IFO_P_1

PATIENT
  Age: 63 Year
  Sex: Male
  Weight: 86 kg

DRUGS (6)
  1. IFOSFAMIDE [Suspect]
     Active Substance: IFOSFAMIDE
     Indication: Soft tissue sarcoma
     Dosage: 3.5 G, QD, INJECTION
     Route: 042
     Dates: start: 20231212, end: 20231216
  2. MESNA [Suspect]
     Active Substance: MESNA
     Indication: Product used for unknown indication
     Dosage: UNK, (STRENGTH: 400 MG, INJECTION)
     Route: 042
     Dates: start: 20231212, end: 20231216
  3. ADRIACIN [Suspect]
     Active Substance: DOXORUBICIN HYDROCHLORIDE
     Dosage: UNK
     Route: 042
     Dates: start: 20231212, end: 20231213
  4. GRANISETRON [Suspect]
     Active Substance: GRANISETRON
     Dosage: UNK
     Route: 042
     Dates: start: 20231212, end: 20231215
  5. DEXAMETHASONE SODIUM PHOSPHATE [Suspect]
     Active Substance: DEXAMETHASONE PHOSPHATE\DEXAMETHASONE SODIUM PHOSPHATE
     Dosage: UNK
     Route: 042
     Dates: start: 20231212, end: 20231215
  6. MEYLON [Suspect]
     Active Substance: SODIUM BICARBONATE
     Dosage: UNK
     Route: 042
     Dates: start: 20231212, end: 20231216

REACTIONS (2)
  - Neutrophil count decreased [Recovered/Resolved]
  - White blood cell count decreased [Recovered/Resolved]

NARRATIVE: CASE EVENT DATE: 20231221
